FAERS Safety Report 21415259 (Version 2)
Quarter: 2022Q4

REPORT INFORMATION
  Report Type: Spontaneous
  Country: US (occurrence: US)
  Receive Date: 20221006
  Receipt Date: 20221022
  Transmission Date: 20230113
  Serious: Yes (Hospitalization, Other)
  Sender: FDA-Public Use
  Company Number: US-drreddys-SPO/USA/22/0155389

PATIENT
  Age: 16 Year
  Sex: Male

DRUGS (3)
  1. OLANZAPINE [Suspect]
     Active Substance: OLANZAPINE
     Indication: Catatonia
     Dosage: UP TO 2.5 MG TWICE DAILY
  2. LORAZEPAM [Concomitant]
     Active Substance: LORAZEPAM
     Indication: Catatonia
     Route: 048
  3. LORAZEPAM [Concomitant]
     Active Substance: LORAZEPAM
     Route: 048

REACTIONS (4)
  - Catatonia [Recovered/Resolved]
  - Condition aggravated [Recovered/Resolved]
  - Urinary incontinence [Unknown]
  - Drug ineffective [Unknown]
